FAERS Safety Report 4632930-X (Version None)
Quarter: 2005Q2

REPORT INFORMATION
  Report Type: 
  Country: None (occurrence: None)
  Receive Date: 20050412
  Receipt Date: 20050310
  Transmission Date: 20051028
  Serious: Yes (Life-Threatening, Hospitalization)
  Sender: FDA-Public Use
  Company Number: DE-ROCHE-398368

PATIENT
  Age: 44 Year
  Sex: Female

DRUGS (31)
  1. VALIUM [Suspect]
     Indication: SEDATION
     Route: 065
  2. VALIUM [Suspect]
     Route: 065
     Dates: start: 20050225, end: 20050225
  3. DACLIZUMAB [Suspect]
     Route: 042
     Dates: start: 20050217, end: 20050217
  4. DACLIZUMAB [Suspect]
     Route: 042
     Dates: start: 20050224, end: 20050224
  5. MYCOPHENOLATE MOFETIL [Suspect]
     Route: 042
     Dates: start: 20050217, end: 20050222
  6. MYCOPHENOLATE MOFETIL [Suspect]
     Dosage: SWITCH FROM IV TO ORAL - NO DOSE CHANGE.
     Route: 048
     Dates: start: 20050223, end: 20050307
  7. MYCOPHENOLATE MOFETIL [Suspect]
     Dosage: TREATMENT OF REJECTION.
     Route: 048
     Dates: start: 20050308, end: 20050308
  8. MYCOPHENOLATE MOFETIL [Suspect]
     Dosage: NEW MAINTENANCE DOSE BECAUSE OF REJECTION.
     Route: 048
     Dates: start: 20050309, end: 20050315
  9. MYCOPHENOLATE MOFETIL [Suspect]
     Dosage: RETURN TOWARDS PER PROTOCOL DOSE.
     Route: 048
     Dates: start: 20050316
  10. TACROLIMUS [Suspect]
     Dosage: DOSE ADJUSTED TO REACH PREDEFINED TARGET LEVELS.
     Route: 048
     Dates: start: 20050222
  11. METHYLPREDNISOLONE [Suspect]
     Route: 065
     Dates: start: 20050217, end: 20050217
  12. METHYLPREDNISOLONE [Suspect]
     Dosage: TREATMENT OF REJECTION.
     Route: 065
     Dates: start: 20050307, end: 20050309
  13. PREDNISONE [Suspect]
     Dosage: TAPER ACCORDING TO LOCAL PROTOCOL.
     Route: 065
     Dates: start: 20050218
  14. ACETYLCYSTEINE [Concomitant]
     Dates: start: 20050222, end: 20050306
  15. NOREPINEPHRINE HCL [Concomitant]
     Dates: start: 20050217, end: 20050219
  16. ANTITHROMBIN III [Concomitant]
     Dates: start: 20050217, end: 20050219
  17. SULFAMETHOXAZOLE AND TRIMETHOPRIM [Concomitant]
     Dates: start: 20050218
  18. METOPROLOL SUCCINATE [Concomitant]
     Indication: HYPERTENSION
     Dates: start: 20050222
  19. NADROPARIN [Concomitant]
     Indication: THROMBOSIS PROPHYLAXIS
     Dates: start: 20050222
  20. ALBUMIN (HUMAN) [Concomitant]
     Indication: ILL-DEFINED DISORDER
     Dates: start: 20050219, end: 20050227
  21. HEPARIN [Concomitant]
     Indication: HAEMORRHAGE
     Dates: start: 20050225, end: 20050227
  22. FUROSEMIDE [Concomitant]
     Indication: DIURETIC THERAPY
     Dates: start: 20050218, end: 20050305
  23. BROMAZEPAM [Concomitant]
     Indication: ANXIETY
     Dates: start: 20050224, end: 20050304
  24. NYSTATIN [Concomitant]
     Indication: PROPHYLAXIS
     Dates: start: 20050217
  25. METAMIZOL [Concomitant]
     Dates: start: 20050222, end: 20050228
  26. PANTOPRAZOL [Concomitant]
     Indication: PROPHYLAXIS
     Dates: start: 20050217
  27. CLONIDIN [Concomitant]
     Dates: start: 20050218, end: 20050226
  28. SUCRALFAT [Concomitant]
     Indication: PROPHYLAXIS
     Dates: start: 20050223
  29. MUPIROCIN [Concomitant]
     Indication: PROPHYLAXIS
     Dates: start: 20050217
  30. VALGANCICLOVIR [Concomitant]
     Indication: PROPHYLAXIS
     Route: 065
     Dates: start: 20050222
  31. PIRITRAMID [Concomitant]
     Indication: ANAESTHETIC PREMEDICATION

REACTIONS (6)
  - DISTURBANCE IN ATTENTION [None]
  - DYSPNOEA [None]
  - OXYGEN SATURATION DECREASED [None]
  - PLEURAL EFFUSION [None]
  - RESPIRATORY DEPRESSION [None]
  - SOMNOLENCE [None]
